FAERS Safety Report 16426533 (Version 3)
Quarter: 2019Q4

REPORT INFORMATION
  Report Type: Spontaneous
  Country: CA (occurrence: CA)
  Receive Date: 20190613
  Receipt Date: 20191109
  Transmission Date: 20200122
  Serious: Yes (Life-Threatening, Hospitalization)
  Sender: FDA-Public Use
  Company Number: CA-TEVA-2019-CA-1061423

PATIENT
  Age: 23 Year
  Sex: Male

DRUGS (1)
  1. BUPROPION XL [Suspect]
     Active Substance: BUPROPION
     Route: 048

REACTIONS (4)
  - Overdose [Unknown]
  - Depressed level of consciousness [Recovered/Resolved]
  - Electrocardiogram QRS complex prolonged [Recovered/Resolved]
  - Cardiogenic shock [Recovered/Resolved]
